FAERS Safety Report 4713770-X (Version None)
Quarter: 2005Q3

REPORT INFORMATION
  Report Type: 
  Country: None (occurrence: None)
  Receive Date: 20050713
  Receipt Date: 20041006
  Transmission Date: 20060218
  Serious: Yes (Life-Threatening, Hospitalization, Disabling)
  Sender: FDA-Public Use
  Company Number: US-MERCK-0410USA00840

PATIENT
  Age: 52 Year
  Sex: Male

DRUGS (8)
  1. VIOXX [Suspect]
     Indication: BACK PAIN
     Route: 048
     Dates: start: 20010912, end: 20040301
  2. WELLBUTRIN [Concomitant]
     Route: 065
  3. SEROQUEL [Concomitant]
     Route: 065
  4. ACIPHEX [Concomitant]
     Route: 065
  5. ZOCOR [Concomitant]
     Route: 065
  6. NIASPAN [Concomitant]
     Route: 065
  7. VICODIN [Concomitant]
     Route: 065
  8. XANAX [Concomitant]
     Route: 065

REACTIONS (2)
  - CARDIAC DISORDER [None]
  - INJURY [None]
